FAERS Safety Report 5531449-1 (Version None)
Quarter: 2007Q4

REPORT INFORMATION
  Report Type: 
  Country: None (occurrence: None)
  Receive Date: 20071128
  Receipt Date: 20071128
  Transmission Date: 20080405
  Serious: Yes (Other)
  Sender: FDA-Public Use
  Company Number: None

PATIENT
  Age: 48 Year
  Sex: Female
  Weight: 99.7913 kg

DRUGS (1)
  1. CHANTIX [Suspect]
     Indication: SMOKING CESSATION THERAPY
     Dosage: 1 MG BID PO
     Route: 048
     Dates: start: 20071008, end: 20071122

REACTIONS (8)
  - ACUTE STRESS DISORDER [None]
  - ANXIETY [None]
  - CONDITION AGGRAVATED [None]
  - DEPRESSION [None]
  - FRUSTRATION [None]
  - IMPATIENCE [None]
  - IRRITABILITY [None]
  - MOOD ALTERED [None]
